FAERS Safety Report 8022168-0 (Version None)
Quarter: 2012Q1

REPORT INFORMATION
  Report Type: 
  Country: None (occurrence: None)
  Receive Date: 20120104
  Receipt Date: 20111223
  Transmission Date: 20120608
  Serious: Yes (Hospitalization)
  Sender: FDA-Public Use
  Company Number: US-PFIZER INC-2011245366

PATIENT
  Sex: Male
  Weight: 89 kg

DRUGS (10)
  1. POTASSIUM CHLORIDE [Concomitant]
     Indication: MEDICAL DIET
     Dosage: 20 MEQ, 1X/DAY
     Dates: end: 20111105
  2. LASIX [Concomitant]
     Indication: HYPERTENSION
     Dosage: UNK
     Dates: end: 20111105
  3. COREG [Concomitant]
     Indication: HYPERTENSION
     Dosage: UNK
     Dates: end: 20111010
  4. ZOCOR [Concomitant]
     Indication: HYPERLIPIDAEMIA
     Dosage: 40 MG, 1X/DAY
     Dates: end: 20111105
  5. LEVOTHYROXINE [Concomitant]
     Indication: HYPOTHYROIDISM
     Dosage: 50 UG, 1X/DAY
     Dates: end: 20111105
  6. ZETIA [Concomitant]
     Indication: HYPERLIPIDAEMIA
     Dosage: 10 MG, 1X/DAY
     Dates: end: 20111105
  7. ASPIRIN [Concomitant]
     Indication: CARDIOVASCULAR EVENT PROPHYLAXIS
     Dosage: UNK
     Dates: end: 20111105
  8. BENZONATATE [Concomitant]
     Indication: COUGH
     Dosage: UNK
     Dates: end: 20111105
  9. FLUZONE [Concomitant]
     Indication: ANTIVIRAL PROPHYLAXIS
     Dosage: 1 DF, UNK
     Route: 058
     Dates: start: 20111005, end: 20111005
  10. CRIZOTINIB [Suspect]
     Indication: NON-SMALL CELL LUNG CANCER
     Dosage: 250 MG, 2X/DAY
     Route: 048
     Dates: start: 20110603, end: 20111024

REACTIONS (3)
  - CONSTIPATION [None]
  - ORTHOSTATIC HYPOTENSION [None]
  - ILEUS [None]
